FAERS Safety Report 4879737-6 (Version None)
Quarter: 2006Q1

REPORT INFORMATION
  Report Type: 
  Country: None (occurrence: None)
  Receive Date: 20060111
  Receipt Date: 20051228
  Transmission Date: 20060701
  Serious: Yes (Hospitalization)
  Sender: FDA-Public Use
  Company Number: 2005-DE-05668GD

PATIENT
  Age: 16 Year
  Sex: Female
  Weight: 38 kg

DRUGS (1)
  1. COCAINE (COCAINE) [Suspect]

REACTIONS (3)
  - DRUG ABUSER [None]
  - MYOCARDIAL ISCHAEMIA [None]
  - VENTRICULAR DYSFUNCTION [None]
